FAERS Safety Report 22328093 (Version 1)
Quarter: 2023Q2

REPORT INFORMATION
  Report Type: Spontaneous
  Country: DE (occurrence: DE)
  Receive Date: 20230516
  Receipt Date: 20230516
  Transmission Date: 20230722
  Serious: Yes (Other)
  Sender: FDA-Public Use
  Company Number: DE-DCGMA-23200675

PATIENT
  Age: 79 Year
  Sex: Female

DRUGS (6)
  1. BEMPEDOIC ACID\EZETIMIBE [Suspect]
     Active Substance: BEMPEDOIC ACID\EZETIMIBE
     Indication: Coronary artery disease
     Dosage: 0.5 DF, BID (180/10 TWICE A DAY)
     Route: 048
  2. CANDESARTAN CILEXETIL [Concomitant]
     Active Substance: CANDESARTAN CILEXETIL
     Indication: Cardiac disorder
     Dosage: 1 DF, BID (1-0-1)
     Route: 065
  3. METOPROLOL SUCCINATE [Concomitant]
     Active Substance: METOPROLOL SUCCINATE
     Indication: Cardiac disorder
     Dosage: 1 DF, BID  (1-0-1)
     Route: 065
  4. TRIAMTERENE [Concomitant]
     Active Substance: TRIAMTERENE
     Indication: Cardiac disorder
     Dosage: 1 DF, QD (1-0-0)
     Route: 065
  5. ESOMEPRAZOLE MAGNESIUM [Concomitant]
     Active Substance: ESOMEPRAZOLE MAGNESIUM
     Indication: Product used for unknown indication
     Dosage: 1 DF, QD
     Route: 065
  6. ELIQUIS [Concomitant]
     Active Substance: APIXABAN
     Indication: Cardiac disorder
     Dosage: 1 DF, BID (1-0-1)

REACTIONS (4)
  - Renal impairment [Unknown]
  - Gastrooesophageal reflux disease [Not Recovered/Not Resolved]
  - Pruritus [Not Recovered/Not Resolved]
  - Inappropriate schedule of product administration [Recovered/Resolved]

NARRATIVE: CASE EVENT DATE: 20220214
